FAERS Safety Report 5558418-X (Version None)
Quarter: 2007Q4

REPORT INFORMATION
  Report Type: 
  Country: None (occurrence: None)
  Receive Date: 20071214
  Receipt Date: 20070904
  Transmission Date: 20080405
  Serious: No
  Sender: FDA-Public Use
  Company Number: US-ABBOTT-07P-163-0371921-00

PATIENT
  Sex: Female
  Weight: 97.7 kg

DRUGS (3)
  1. HUMIRA [Suspect]
     Indication: CROHN'S DISEASE
     Route: 058
     Dates: start: 20070419
  2. AZATHIOPRINE [Concomitant]
     Indication: LIVER DISORDER
     Route: 048
  3. LUNESTA [Concomitant]
     Indication: INSOMNIA
     Route: 048

REACTIONS (7)
  - CONTUSION [None]
  - FATIGUE [None]
  - HEADACHE [None]
  - MUSCLE TIGHTNESS [None]
  - RASH [None]
  - RASH MACULAR [None]
  - TEMPOROMANDIBULAR JOINT SYNDROME [None]
